FAERS Safety Report 13456353 (Version 1)
Quarter: 2017Q2

REPORT INFORMATION
  Report Type: Spontaneous
  Country: JP (occurrence: JP)
  Receive Date: 20170418
  Receipt Date: 20170418
  Transmission Date: 20170830
  Serious: Yes (Other)
  Sender: FDA-Public Use
  Company Number: JP-PFIZER INC-2017164142

PATIENT

DRUGS (1)
  1. ZITHROMAC SR 2G [Suspect]
     Active Substance: AZITHROMYCIN MONOHYDRATE
     Dosage: UNK
     Route: 048

REACTIONS (2)
  - Aspiration [Unknown]
  - Inappropriate schedule of drug administration [Unknown]
